FAERS Safety Report 8723261 (Version 2)
Quarter: 2013Q4

REPORT INFORMATION
  Report Type: Spontaneous
  Country: US (occurrence: US)
  Receive Date: 20120814
  Receipt Date: 20131202
  Transmission Date: 20140711
  Serious: No
  Sender: FDA-Public Use
  Company Number: US-ASTRAZENECA-2012SE55885

PATIENT
  Age: 77 Year
  Sex: Female
  Weight: 52.6 kg

DRUGS (6)
  1. NEXIUM [Suspect]
     Indication: GASTROOESOPHAGEAL REFLUX DISEASE
     Route: 048
     Dates: start: 2001
  2. PREDNISONE [Concomitant]
     Indication: TEMPORAL ARTERITIS
  3. COUMADIN [Concomitant]
     Indication: ATRIAL FIBRILLATION
  4. DIAZIDE [Concomitant]
     Indication: POLYURIA
  5. GLIMEPERIDE [Concomitant]
     Indication: DIABETES MELLITUS
  6. INSULIN PEN [Concomitant]
     Indication: DIABETES MELLITUS

REACTIONS (12)
  - Atrial fibrillation [Unknown]
  - Blood glucose increased [Unknown]
  - Body height decreased [Unknown]
  - Bronchitis [Unknown]
  - Diabetes mellitus [Unknown]
  - Gastrooesophageal reflux disease [Unknown]
  - Oesophageal irritation [Unknown]
  - Polymyalgia rheumatica [Unknown]
  - Temporal arteritis [Unknown]
  - Tremor [Unknown]
  - Intentional drug misuse [Unknown]
  - Drug dose omission [Unknown]
